FAERS Safety Report 7298098-9 (Version None)
Quarter: 2011Q1

REPORT INFORMATION
  Report Type: 
  Country: None (occurrence: None)
  Receive Date: 20110217
  Receipt Date: 20110217
  Transmission Date: 20110831
  Serious: Yes (Death)
  Sender: FDA-Public Use
  Company Number: PHHO2010IT19288

PATIENT

DRUGS (1)
  1. EVEROLIMUS [Suspect]
     Route: 048

REACTIONS (3)
  - TREMOR [None]
  - DEATH [None]
  - ANAEMIA [None]
